FAERS Safety Report 15072487 (Version 1)
Quarter: 2018Q2

REPORT INFORMATION
  Report Type: Spontaneous
  Country: FR (occurrence: FR)
  Receive Date: 20180626
  Receipt Date: 20180626
  Transmission Date: 20180711
  Serious: Yes (Other)
  Sender: FDA-Public Use
  Company Number: FR-009507513-1806FRA009708

PATIENT
  Age: 36 Year
  Sex: Male

DRUGS (1)
  1. DIPROSTENE [Suspect]
     Active Substance: BETAMETHASONE DIPROPIONATE\BETAMETHASONE SODIUM PHOSPHATE
     Indication: CARPAL TUNNEL SYNDROME
     Dosage: IN TOTAL
     Route: 030
     Dates: start: 20180515, end: 20180515

REACTIONS (3)
  - Chorioretinitis [Recovering/Resolving]
  - Macular oedema [Recovering/Resolving]
  - Visual acuity reduced [Recovering/Resolving]

NARRATIVE: CASE EVENT DATE: 20180518
